FAERS Safety Report 23201470 (Version 1)
Quarter: 2023Q4

REPORT INFORMATION
  Report Type: Spontaneous
  Country: ES (occurrence: ES)
  Receive Date: 20231118
  Receipt Date: 20231118
  Transmission Date: 20240109
  Serious: Yes (Hospitalization)
  Sender: FDA-Public Use
  Company Number: None

PATIENT
  Age: 48 Year
  Sex: Male

DRUGS (1)
  1. OXALIPLATIN [Suspect]
     Active Substance: OXALIPLATIN
     Dosage: UNK
     Dates: start: 20231031, end: 20231031

REACTIONS (5)
  - Oxygen saturation decreased [Unknown]
  - Flushing [Unknown]
  - Malaise [Unknown]
  - Abdominal pain [Unknown]
  - Hypotension [Unknown]

NARRATIVE: CASE EVENT DATE: 20231031
